FAERS Safety Report 25509295 (Version 1)
Quarter: 2025Q3

REPORT INFORMATION
  Report Type: Spontaneous
  Country: US (occurrence: None)
  Receive Date: 20250702
  Receipt Date: 20250702
  Transmission Date: 20251020
  Serious: Yes (Hospitalization)
  Sender: FDA-CTU
  Company Number: None

PATIENT
  Sex: Male

DRUGS (4)
  1. RINVOQ [Suspect]
     Active Substance: UPADACITINIB
     Indication: Colitis ulcerative
     Dosage: FREQUENCY : DAILY;?
     Route: 048
     Dates: start: 20240815
  2. FOLIC ACID TAB [Concomitant]
  3. MULTIVITAMIN TAB ADULTS [Concomitant]
  4. VITAMIN D CAP [Concomitant]

REACTIONS (1)
  - Therapy interrupted [None]
